FAERS Safety Report 25526166 (Version 1)
Quarter: 2025Q3

REPORT INFORMATION
  Report Type: Spontaneous
  Country: US (occurrence: None)
  Receive Date: 20250707
  Receipt Date: 20250707
  Transmission Date: 20251020
  Serious: Yes (Other)
  Sender: FDA-CTU
  Company Number: None

PATIENT
  Age: 76 Year
  Sex: Male
  Weight: 87.75 kg

DRUGS (1)
  1. LAGEVRIO [Suspect]
     Active Substance: MOLNUPIRAVIR
     Indication: COVID-19
     Dosage: 40 CAPSULE(S) TWICE A DAY ORAL
     Route: 048
     Dates: start: 20250625, end: 20250704

REACTIONS (2)
  - Faeces discoloured [None]
  - Haematochezia [None]

NARRATIVE: CASE EVENT DATE: 20250705
